FAERS Safety Report 6150890-X (Version None)
Quarter: 2009Q2

REPORT INFORMATION
  Report Type: 
  Country: None (occurrence: None)
  Receive Date: 20090408
  Receipt Date: 20090402
  Transmission Date: 20091009
  Serious: Yes (Hospitalization)
  Sender: FDA-Public Use
  Company Number: WAES 0904USA00321

PATIENT
  Age: 68 Year
  Sex: 0
  Weight: 94.8018 kg

DRUGS (4)
  1. COZAAR [Suspect]
     Indication: HYPERTENSION
     Dosage: 50 MG/ PO
     Route: 048
  2. BLINDED THERAPY UNK [Suspect]
     Dosage: 1 DOSE/ PO
     Route: 048
  3. CRESTOR [Concomitant]
  4. ASPIRIN [Concomitant]

REACTIONS (6)
  - ANGINA UNSTABLE [None]
  - ARTHRALGIA [None]
  - BRADYCARDIA [None]
  - CONDITION AGGRAVATED [None]
  - DYSPNOEA [None]
  - PAIN IN EXTREMITY [None]
